FAERS Safety Report 4544492-6 (Version None)
Quarter: 2004Q4

REPORT INFORMATION
  Report Type: 
  Country: None (occurrence: None)
  Receive Date: 20041230
  Receipt Date: 20030624
  Transmission Date: 20050328
  Serious: Yes (Other)
  Sender: FDA-Public Use
  Company Number: 200410551BBE

PATIENT
  Sex: Male

DRUGS (9)
  1. HYPRHO-D [Suspect]
     Route: 064
  2. INJECTABLE GLOBULIN              (IMMUNOGLOBULINS) [Suspect]
  3. INJECTABLE GLOBULIN                          (IMMUNOGLOBULINS) [Suspect]
  4. INJECTABLE GLOBULIN                  (IMMUNOGLOBULINS) [Suspect]
     Route: 064
  5. INJECTABLE GLOBULIN                       (IMMUNOGLOBULINS) [Suspect]
     Route: 064
  6. INJECTABLE GLOBULIN                        (IMMUNOGLOBULINS) [Suspect]
     Route: 065
  7. INJECTABLE GLOBULIN (             IMMUNOGLOBULINS) [Suspect]
     Route: 064
  8. INJECTABLE GLOBULIN                    (IMMUNOGLOBOULINS) [Suspect]
     Route: 064
  9. , [Concomitant]

REACTIONS (4)
  - DEVELOPMENTAL DELAY [None]
  - DRUG EXPOSURE DURING PREGNANCY [None]
  - NERVOUS SYSTEM DISORDER [None]
  - SPEECH DISORDER DEVELOPMENTAL [None]
